FAERS Safety Report 11366037 (Version 5)
Quarter: 2016Q4

REPORT INFORMATION
  Report Type: Spontaneous
  Country: US (occurrence: US)
  Receive Date: 20150811
  Receipt Date: 20161213
  Transmission Date: 20170206
  Serious: No
  Sender: FDA-Public Use
  Company Number: US-BAYER-2015-391659

PATIENT
  Sex: Female
  Weight: 59.64 kg

DRUGS (22)
  1. AVELOX [Suspect]
     Active Substance: MOXIFLOXACIN HYDROCHLORIDE
     Indication: INFECTION
     Dosage: 400 MG, UNK
     Dates: start: 20060531
  2. CIPRO [Suspect]
     Active Substance: CIPROFLOXACIN HYDROCHLORIDE
     Dosage: 500 MG, QD
     Route: 048
     Dates: start: 200901
  3. CIPRO [Suspect]
     Active Substance: CIPROFLOXACIN HYDROCHLORIDE
     Dosage: 500 MG, QD
     Route: 048
     Dates: start: 200907
  4. CIPRO [Suspect]
     Active Substance: CIPROFLOXACIN HYDROCHLORIDE
     Dosage: UNK
     Dates: start: 2013
  5. LEVAQUIN [Concomitant]
     Active Substance: LEVOFLOXACIN
     Dosage: 500 MG, UNK
     Dates: start: 20110119
  6. METFORMIN [Concomitant]
     Active Substance: METFORMIN HYDROCHLORIDE
     Dosage: UNK
  7. CIPROFLOXACIN. [Suspect]
     Active Substance: CIPROFLOXACIN
     Indication: RESPIRATION ABNORMAL
     Dosage: 500 MG, UNK
     Dates: start: 20130117
  8. LEVOFLOXACIN. [Suspect]
     Active Substance: LEVOFLOXACIN
     Dosage: 500 MG, UNK
     Dates: start: 20130716
  9. AVELOX [Suspect]
     Active Substance: MOXIFLOXACIN HYDROCHLORIDE
     Indication: INFECTION
     Dosage: 400 MG, UNK
     Dates: start: 20080229
  10. CIPRO [Suspect]
     Active Substance: CIPROFLOXACIN HYDROCHLORIDE
     Dosage: 500 MG, QD
     Route: 048
     Dates: start: 201104
  11. NABUMETONE. [Concomitant]
     Active Substance: NABUMETONE
     Dosage: UNK
  12. SINGULAIR [Concomitant]
     Active Substance: MONTELUKAST SODIUM
     Dosage: UNK
  13. LEVAQUIN [Concomitant]
     Active Substance: LEVOFLOXACIN
     Dosage: 500 MG, UNK
     Dates: start: 20051221
  14. AVELOX [Suspect]
     Active Substance: MOXIFLOXACIN HYDROCHLORIDE
     Indication: INFECTION
     Dosage: 400 MG, UNK
     Dates: start: 20070627
  15. CIPRO [Suspect]
     Active Substance: CIPROFLOXACIN HYDROCHLORIDE
     Dosage: 500 MG, QD
     Route: 048
     Dates: start: 201101
  16. LEVAQUIN [Concomitant]
     Active Substance: LEVOFLOXACIN
     Dosage: 500 MG, UNK
     Dates: start: 20050627
  17. PAXIL [Concomitant]
     Active Substance: PAROXETINE HYDROCHLORIDE
     Dosage: UNK
  18. AVELOX [Suspect]
     Active Substance: MOXIFLOXACIN HYDROCHLORIDE
     Indication: INFECTION
     Dosage: 500 MG, QD
     Route: 048
     Dates: start: 200706
  19. AVELOX [Suspect]
     Active Substance: MOXIFLOXACIN HYDROCHLORIDE
     Indication: INFECTION
     Dosage: 500 MG, QD
     Route: 048
     Dates: start: 200802
  20. CIPROFLOXACIN. [Suspect]
     Active Substance: CIPROFLOXACIN
     Indication: RESPIRATION ABNORMAL
     Dosage: 500 MG, QD
     Route: 048
     Dates: start: 20091001
  21. LEVAQUIN [Concomitant]
     Active Substance: LEVOFLOXACIN
     Dosage: 750 MG, UNK
     Dates: start: 20110403
  22. LEVOFLOXACIN. [Suspect]
     Active Substance: LEVOFLOXACIN
     Dosage: 500 MG, UNK
     Dates: start: 20130610

REACTIONS (60)
  - Spinal osteoarthritis [None]
  - Migraine [None]
  - Nausea [None]
  - Arthralgia [None]
  - Dyslexia [None]
  - Productive cough [None]
  - Pneumonia [None]
  - Benign breast neoplasm [None]
  - Discomfort [None]
  - Hyperhidrosis [None]
  - Vision blurred [None]
  - Swelling [None]
  - Paraesthesia [None]
  - Hypertension [None]
  - Diabetic neuropathy [None]
  - Carpal tunnel syndrome [None]
  - Hot flush [None]
  - Sinusitis [None]
  - Rhinorrhoea [None]
  - Dyskinesia [None]
  - Insomnia [None]
  - Uterine leiomyoma [None]
  - Incontinence [None]
  - Injury [None]
  - Pain [None]
  - Pain in extremity [None]
  - Cataract [None]
  - Sleep apnoea syndrome [None]
  - Breast neoplasm [None]
  - Wheezing [None]
  - Intervertebral disc protrusion [None]
  - Neuropathy peripheral [None]
  - Neck pain [None]
  - Oropharyngeal pain [None]
  - Musculoskeletal stiffness [None]
  - Staphylococcal infection [None]
  - Hypoaesthesia [None]
  - Coordination abnormal [None]
  - Muscle rigidity [None]
  - Asthma [None]
  - Fibromyalgia [None]
  - Back pain [None]
  - Headache [None]
  - Muscular weakness [None]
  - Heart valve incompetence [None]
  - Secretion discharge [None]
  - Dizziness [None]
  - Nocturia [None]
  - Sciatica [None]
  - Emotional distress [None]
  - Fatigue [None]
  - Cervicogenic headache [None]
  - Muscle spasms [None]
  - Joint swelling [None]
  - Axonal neuropathy [None]
  - Balance disorder [None]
  - Spinal column stenosis [None]
  - Cataract operation [None]
  - Dyspnoea [None]
  - Impulse-control disorder [None]
